FAERS Safety Report 10299037 (Version 1)
Quarter: 2014Q3

REPORT INFORMATION
  Report Type: Spontaneous
  Country: ES (occurrence: ES)
  Receive Date: 20140711
  Receipt Date: 20140711
  Transmission Date: 20150326
  Serious: Yes (Life-Threatening, Hospitalization)
  Sender: FDA-Public Use
  Company Number: ES-ASTRAZENECA-2014SE49704

PATIENT
  Age: 72 Year
  Sex: Male

DRUGS (5)
  1. ENALAPRIL [Concomitant]
     Active Substance: ENALAPRIL
     Indication: HYPERTENSION
     Dosage: 5 MG DAILY, LATENCY:1 MONTH
     Route: 048
     Dates: start: 201310
  2. BRILIQUE [Suspect]
     Active Substance: TICAGRELOR
     Indication: MYOCARDIAL ISCHAEMIA
     Dosage: 180 MG DAILY, LATENCY: 1 MONTH
     Route: 048
     Dates: start: 201310, end: 20131104
  3. ACETYLSALICYLIC ACID [Interacting]
     Active Substance: ASPIRIN
     Indication: MYOCARDIAL ISCHAEMIA
     Dosage: 100 MG DAILY, LATENCY: 2 MONTHS
     Route: 048
     Dates: start: 201309, end: 20131104
  4. ATORVASTATIN [Concomitant]
     Active Substance: ATORVASTATIN
     Indication: HYPERLIPIDAEMIA
     Dosage: 40 MG DAILY, LATENCY:1 MONTH
     Route: 048
     Dates: start: 201310
  5. NITROGLYCERIN. [Concomitant]
     Active Substance: NITROGLYCERIN
     Indication: MYOCARDIAL ISCHAEMIA
     Dosage: LATENCY: 1MONTH
     Route: 062
     Dates: start: 201310

REACTIONS (7)
  - Nausea [Unknown]
  - Drug interaction [Unknown]
  - Induration [Unknown]
  - Haematochezia [Unknown]
  - Gastritis [Unknown]
  - Upper gastrointestinal haemorrhage [Recovered/Resolved]
  - Melaena [Unknown]

NARRATIVE: CASE EVENT DATE: 20131101
